FAERS Safety Report 16894964 (Version 1)
Quarter: 2019Q4

REPORT INFORMATION
  Report Type: Spontaneous
  Country: US (occurrence: US)
  Receive Date: 20191008
  Receipt Date: 20191008
  Transmission Date: 20200122
  Serious: No
  Sender: FDA-Public Use
  Company Number: US-INDIVIOR US-INDV-115242-2018

PATIENT
  Age: 52 Year
  Sex: Female

DRUGS (1)
  1. SUBOXONE [Suspect]
     Active Substance: BUPRENORPHINE HYDROCHLORIDE\NALOXONE HYDROCHLORIDE
     Indication: PRODUCT USED FOR UNKNOWN INDICATION
     Dosage: UNK
     Route: 065

REACTIONS (9)
  - Visual impairment [Unknown]
  - Hypersensitivity [Unknown]
  - Feeling abnormal [Unknown]
  - Weight decreased [Unknown]
  - Dizziness [Unknown]
  - Speech disorder [Unknown]
  - Swollen tongue [Unknown]
  - Fear [Unknown]
  - Dry mouth [Unknown]
